FAERS Safety Report 10484384 (Version 7)
Quarter: 2016Q3

REPORT INFORMATION
  Report Type: Spontaneous
  Country: US (occurrence: US)
  Receive Date: 20140930
  Receipt Date: 20160810
  Transmission Date: 20161109
  Serious: Yes (Hospitalization)
  Sender: FDA-Public Use
  Company Number: US-PFIZER INC-2014267227

PATIENT
  Age: 53 Year
  Sex: Male
  Weight: 98 kg

DRUGS (18)
  1. TAMSULOSIN [Concomitant]
     Active Substance: TAMSULOSIN
     Dosage: 0.4 MG, UNK
     Dates: start: 2011
  2. BETA CAROTENE [Concomitant]
     Dosage: 30 MG, 1X/DAY
     Route: 048
  3. CENTRUM COMPLETE [Concomitant]
     Dosage: UNK UNK, 1X/DAY, (18 MG 400 MCG TABLET)
     Route: 048
  4. SUTENT [Suspect]
     Active Substance: SUNITINIB MALATE
     Indication: METASTATIC RENAL CELL CARCINOMA
     Dosage: 50 MG, CYCLIC (ONCE A DAY, 28 DAYS ON WASH OUT PERIOD AND TWO WEEKS OFF WASH OUT PERIOD)
     Route: 048
     Dates: start: 201209
  5. SUTENT [Suspect]
     Active Substance: SUNITINIB MALATE
     Dosage: 20 MG, CYCLIC (28 DAY ON 14 OFF)
     Dates: start: 201209
  6. XGEVA [Concomitant]
     Active Substance: DENOSUMAB
     Indication: RENAL CANCER
     Dosage: UNK UNK, CYCLIC (Q4 WK X 3 CYCLES X 1.0)
     Dates: start: 20130109, end: 20130306
  7. ESZOPICLONE. [Concomitant]
     Active Substance: ESZOPICLONE
     Indication: SLEEP DISORDER
     Dosage: 3 MG, UNK
     Dates: start: 2012
  8. VITAMIN D [Concomitant]
     Active Substance: CHOLECALCIFEROL
     Dosage: UNK
     Dates: start: 2011
  9. VITAMIN C [Concomitant]
     Active Substance: ASCORBIC ACID
     Dosage: 1000 MG, 1X/DAY
     Route: 048
     Dates: start: 2012
  10. ASPIR 81 [Concomitant]
     Dosage: 81 MG, 1X/DAY
     Route: 048
  11. LOMOTIL [Concomitant]
     Active Substance: ATROPINE SULFATE\DIPHENOXYLATE HYDROCHLORIDE
     Dosage: UNK, (DIPHENOXYLATE HYDROCHLORIDE: 2.5 MG-ATROPINE SULFATE: 0.025 MG)
     Route: 048
  12. VITAMIN E [Concomitant]
     Active Substance: .ALPHA.-TOCOPHEROL
     Dosage: UNK
  13. PROPRANOLOL [Concomitant]
     Active Substance: PROPRANOLOL\PROPRANOLOL HYDROCHLORIDE
     Dosage: UNK
  14. VITAMIN B-6 [Concomitant]
     Active Substance: PYRIDOXINE
     Dosage: UNK
  15. VITAMIN D2 [Concomitant]
     Active Substance: ERGOCALCIFEROL
     Dosage: 50000 IU, WEEKLY
     Route: 048
     Dates: start: 2011
  16. VITAMIN B12 [Concomitant]
     Active Substance: CYANOCOBALAMIN
     Dosage: UNK
  17. ZANTAC [Concomitant]
     Active Substance: RANITIDINE HYDROCHLORIDE
     Dosage: 150 MG, 1X/DAY (AT BED TIME HS)
     Route: 048
  18. XANAX [Concomitant]
     Active Substance: ALPRAZOLAM
     Indication: SLEEP DISORDER
     Dosage: 1 MG, AS NEEDED (AT BEDTIME (HS) PRN)
     Route: 048

REACTIONS (24)
  - Dyspnoea [Not Recovered/Not Resolved]
  - Gastrooesophageal reflux disease [Not Recovered/Not Resolved]
  - Hair colour changes [Not Recovered/Not Resolved]
  - Delusion [Unknown]
  - Visual impairment [Unknown]
  - Contusion [Recovered/Resolved]
  - Irritability [Not Recovered/Not Resolved]
  - Constipation [Not Recovered/Not Resolved]
  - Fatigue [Not Recovered/Not Resolved]
  - Pain in jaw [Not Recovered/Not Resolved]
  - Diarrhoea [Not Recovered/Not Resolved]
  - Paraesthesia [Not Recovered/Not Resolved]
  - Faeces pale [Recovered/Resolved]
  - Muscle twitching [Unknown]
  - Insomnia [Not Recovered/Not Resolved]
  - Yellow skin [Recovered/Resolved]
  - Pruritus [Not Recovered/Not Resolved]
  - Muscle spasms [Unknown]
  - Impaired healing [Unknown]
  - Back pain [Recovered/Resolved]
  - Gingival bleeding [Not Recovered/Not Resolved]
  - Thinking abnormal [Unknown]
  - Faeces discoloured [Unknown]
  - Hypoaesthesia [Unknown]

NARRATIVE: CASE EVENT DATE: 2012
